FAERS Safety Report 17856028 (Version 1)
Quarter: 2020Q2

REPORT INFORMATION
  Report Type: Spontaneous
  Country: DE (occurrence: DE)
  Receive Date: 20200603
  Receipt Date: 20200603
  Transmission Date: 20200714
  Serious: Yes (Other)
  Sender: FDA-Public Use
  Company Number: NVSC2020DE151501

PATIENT

DRUGS (3)
  1. PREDNISONE. [Suspect]
     Active Substance: PREDNISONE
     Dosage: 60-100 MG (CONSOLIDATION CYCLE DL-4)
     Route: 048
  2. PREDNISONE. [Suspect]
     Active Substance: PREDNISONE
     Dosage: UNK REDUCED TO LEVEL 1:40 MG/M2 AND LEVEL 2:20 MG/M2
     Route: 048
  3. PREDNISONE. [Suspect]
     Active Substance: PREDNISONE
     Indication: PLASMA CELL MYELOMA
     Dosage: 60-100 MG/M2 DL-4 (CYCLE 1 (INDUCTION CYCLE)
     Route: 048

REACTIONS (1)
  - Thrombocytopenia [Unknown]
